FAERS Safety Report 7650379-2 (Version None)
Quarter: 2011Q3

REPORT INFORMATION
  Report Type: 
  Country: None (occurrence: None)
  Receive Date: 20110802
  Receipt Date: 20110722
  Transmission Date: 20111222
  Serious: Yes (Hospitalization, Other)
  Sender: FDA-Public Use
  Company Number: GB-BAXTER-2011BH008663

PATIENT
  Age: 65 Year
  Sex: Male

DRUGS (10)
  1. RITUXIMAB [Suspect]
     Route: 065
     Dates: start: 20090501, end: 20091201
  2. CYCLOPHOSPHAMIDE [Suspect]
     Indication: RENAL VASCULITIS
     Route: 065
     Dates: start: 20071101, end: 20080401
  3. MYCOPHENOLATE MOFETIL [Suspect]
     Indication: RENAL VASCULITIS
     Route: 065
     Dates: start: 20080201
  4. MYCOPHENOLATE MOFETIL [Suspect]
     Route: 065
  5. PREDNISOLONE [Suspect]
     Route: 065
     Dates: start: 20080901
  6. COTRIM [Suspect]
     Indication: BLOOD CREATININE INCREASED
     Route: 065
     Dates: start: 20071101
  7. MYCOPHENOLATE MOFETIL [Suspect]
     Route: 065
     Dates: start: 20080701, end: 20080901
  8. PREDNISOLONE [Suspect]
     Indication: RENAL VASCULITIS
     Route: 065
     Dates: start: 20071101
  9. AZATHIOPRINE [Suspect]
     Indication: PRODUCT USED FOR UNKNOWN INDICATION
     Route: 065
     Dates: end: 20080701
  10. RITUXIMAB [Suspect]
     Indication: RENAL VASCULITIS
     Route: 065
     Dates: start: 20080901, end: 20081001

REACTIONS (17)
  - LOWER RESPIRATORY TRACT INFECTION [None]
  - MYELITIS TRANSVERSE [None]
  - LEUKOPENIA [None]
  - PLEURAL FIBROSIS [None]
  - CUSHING'S SYNDROME [None]
  - PULMONARY VASCULITIS [None]
  - MUSCULOSKELETAL PAIN [None]
  - URINARY RETENTION [None]
  - VASCULITIS [None]
  - SPIROMETRY ABNORMAL [None]
  - MUSCULAR WEAKNESS [None]
  - PAIN [None]
  - C-REACTIVE PROTEIN INCREASED [None]
  - FAECALOMA [None]
  - RESPIRATORY GAS EXCHANGE DISORDER [None]
  - SENSORY LOSS [None]
  - CENTRAL NERVOUS SYSTEM LESION [None]
